FAERS Safety Report 8461288-3 (Version None)
Quarter: 2012Q2

REPORT INFORMATION
  Report Type: 
  Country: None (occurrence: None)
  Receive Date: 20120625
  Receipt Date: 20120612
  Transmission Date: 20120825
  Serious: No
  Sender: FDA-Public Use
  Company Number: US-JNJFOC-20120607186

PATIENT
  Sex: Female
  Weight: 59.88 kg

DRUGS (5)
  1. FENTANYL-100 [Suspect]
     Indication: OSTEOPENIA
     Route: 062
     Dates: start: 20120521
  2. UNKNOWN MEDICATION [Concomitant]
     Indication: CARDIAC DISORDER
     Route: 065
  3. FENTANYL-100 [Suspect]
     Indication: RAYNAUD'S PHENOMENON
     Route: 062
     Dates: start: 20120521
  4. FENTANYL-100 [Suspect]
     Indication: FIBROMYALGIA
     Route: 062
     Dates: start: 20120521
  5. FENTANYL-100 [Suspect]
     Indication: OSTEOARTHRITIS
     Route: 062
     Dates: start: 20120521

REACTIONS (4)
  - PRODUCT QUALITY ISSUE [None]
  - GAIT DISTURBANCE [None]
  - BONE PAIN [None]
  - WRONG TECHNIQUE IN DRUG USAGE PROCESS [None]
